FAERS Safety Report 9798323 (Version 2)
Quarter: 2014Q1

REPORT INFORMATION
  Report Type: Spontaneous
  Country: US (occurrence: US)
  Receive Date: 20140106
  Receipt Date: 20140116
  Transmission Date: 20141002
  Serious: No
  Sender: FDA-Public Use
  Company Number: US-BAXTER-2014BAX000356

PATIENT
  Age: 83 Year
  Sex: Female

DRUGS (4)
  1. DIANEAL LOW CALCIUM [Suspect]
     Indication: PERITONEAL DIALYSIS
     Route: 033
  2. DIANEAL LOW CALCIUM [Suspect]
     Indication: RENAL FAILURE
     Route: 033
     Dates: start: 2012
  3. DIANEAL LOW CALCIUM [Suspect]
     Indication: PERITONEAL DIALYSIS
     Route: 033
  4. DIANEAL LOW CALCIUM (ULTRABAG) [Suspect]
     Indication: KIDNEY INFECTION
     Route: 033

REACTIONS (2)
  - Sinusitis [Recovered/Resolved]
  - Laryngitis [Recovering/Resolving]
